FAERS Safety Report 17933099 (Version 1)
Quarter: 2020Q2

REPORT INFORMATION
  Report Type: Spontaneous
  Country: US (occurrence: US)
  Receive Date: 20200624
  Receipt Date: 20200624
  Transmission Date: 20200714
  Serious: Yes (Hospitalization, Other)
  Sender: FDA-Public Use
  Company Number: US-BRISTOL-MYERS SQUIBB COMPANY-BMS-2020-046810

PATIENT
  Sex: Female
  Weight: 47.17 kg

DRUGS (1)
  1. KENALOG-40 [Suspect]
     Active Substance: TRIAMCINOLONE ACETONIDE
     Indication: SCIATICA
     Dosage: DOSAGE: ONE, FREQUENCY:ONE INJECTION
     Route: 008
     Dates: start: 202003

REACTIONS (15)
  - Weight decreased [Unknown]
  - Feeding disorder [Unknown]
  - Hypoaesthesia [Unknown]
  - Tremor [Unknown]
  - Neuralgia [Unknown]
  - Pain [Unknown]
  - Muscular weakness [Unknown]
  - General physical health deterioration [Not Recovered/Not Resolved]
  - Vomiting [Unknown]
  - Muscle spasms [Unknown]
  - Eye pain [Not Recovered/Not Resolved]
  - Seizure [Unknown]
  - Nausea [Unknown]
  - Urinary incontinence [Unknown]
  - Intentional product use issue [Unknown]
